FAERS Safety Report 15402335 (Version 1)
Quarter: 2018Q3

REPORT INFORMATION
  Report Type: Spontaneous
  Country: GR (occurrence: GR)
  Receive Date: 20180919
  Receipt Date: 20180919
  Transmission Date: 20181010
  Serious: Yes (Other)
  Sender: FDA-Public Use
  Company Number: GR-BAUSCH-BL-2018-025572

PATIENT
  Sex: Female

DRUGS (2)
  1. ACITRETIN. [Concomitant]
     Active Substance: ACITRETIN
     Indication: EXPOSURE VIA PARTNER
  2. TARGRETIN [Suspect]
     Active Substance: BEXAROTENE
     Indication: EXPOSURE VIA PARTNER
     Route: 048

REACTIONS (2)
  - Abortion missed [Recovered/Resolved]
  - Exposure via partner [Recovered/Resolved]

NARRATIVE: CASE EVENT DATE: 2018
